FAERS Safety Report 9815958 (Version 3)
Quarter: 2014Q1

REPORT INFORMATION
  Report Type: Spontaneous
  Country: IT (occurrence: IT)
  Receive Date: 20140114
  Receipt Date: 20140129
  Transmission Date: 20141002
  Serious: Yes (Hospitalization, Other)
  Sender: FDA-Public Use
  Company Number: IT-PFIZER INC-2014010785

PATIENT
  Age: 53 Year
  Sex: Female
  Weight: 45 kg

DRUGS (5)
  1. LYRICA [Suspect]
     Dosage: 1050 MG, TOTAL DOSE
     Route: 048
     Dates: start: 20130928, end: 20130929
  2. PARACETAMOL [Suspect]
     Dosage: 16000 MG, TOTAL DOSE
     Route: 048
     Dates: start: 20130928, end: 20130929
  3. DELORAZEPAM [Suspect]
     Dosage: 40 MG, TOTAL DOSE
     Route: 048
     Dates: start: 20130928, end: 20130929
  4. CARDIRENE [Suspect]
     Dosage: 5440 MG, TOTAL DOSE
     Route: 048
     Dates: start: 20130928, end: 20130929
  5. VALDORM [Suspect]
     Dosage: 450 MG, TOTAL DOSE
     Route: 048
     Dates: start: 20130928, end: 20130929

REACTIONS (7)
  - Suicide attempt [Unknown]
  - Speech disorder [Unknown]
  - Bradyphrenia [Unknown]
  - Drug abuse [Unknown]
  - Blood pressure decreased [Unknown]
  - Oxygen saturation decreased [Unknown]
  - Abnormal behaviour [Unknown]
